FAERS Safety Report 6460385-1 (Version None)
Quarter: 2009Q4

REPORT INFORMATION
  Report Type: 
  Country: None (occurrence: None)
  Receive Date: 20091130
  Receipt Date: 20091124
  Transmission Date: 20100525
  Serious: Yes (Death)
  Sender: FDA-Public Use
  Company Number: KR-ASTRAZENECA-2009SE28723

PATIENT
  Age: 38 Year
  Sex: Male

DRUGS (1)
  1. DIPRIVAN [Suspect]
     Dosage: CONTINOUS INFUSION VIA FLUID AGENT
     Route: 042

REACTIONS (2)
  - APNOEA [None]
  - INTENTIONAL DRUG MISUSE [None]
